FAERS Safety Report 21036120 (Version 1)
Quarter: 2022Q3

REPORT INFORMATION
  Report Type: Spontaneous
  Country: US (occurrence: US)
  Receive Date: 20220701
  Receipt Date: 20220701
  Transmission Date: 20221026
  Serious: No
  Sender: FDA-Public Use
  Company Number: US-THERAPEUTICSMD-2021TMD02366

PATIENT
  Sex: Female
  Weight: 53.515 kg

DRUGS (2)
  1. IMVEXXY [Suspect]
     Active Substance: ESTRADIOL
     Indication: Vulvovaginal dryness
     Dosage: 10 ?G, 1X/WEEK BEFORE BED
     Route: 067
  2. UNSPECIFIED MEDICATION FOR BONE DENSITY [Concomitant]

REACTIONS (5)
  - Mobility decreased [Unknown]
  - Hormone level abnormal [Not Recovered/Not Resolved]
  - Product temperature excursion issue [Unknown]
  - Off label use [Not Recovered/Not Resolved]
  - Migraine [Not Recovered/Not Resolved]
